FAERS Safety Report 18429138 (Version 1)
Quarter: 2020Q4

REPORT INFORMATION
  Report Type: Spontaneous
  Country: US (occurrence: US)
  Receive Date: 20201026
  Receipt Date: 20201026
  Transmission Date: 20210114
  Serious: No
  Sender: FDA-Public Use
  Company Number: US-FRESENIUS KABI-FK202011171

PATIENT
  Age: 56 Year
  Sex: Female

DRUGS (2)
  1. DIPRIVAN [Suspect]
     Active Substance: PROPOFOL
     Indication: SEDATIVE THERAPY
     Dosage: MAINTAINED ON 40-55 MCG/KG/MIN
     Route: 065
  2. DIPRIVAN [Suspect]
     Active Substance: PROPOFOL
     Dosage: REQUIRED TITRATION UP TO 80 MCG/KG/MIN
     Route: 042

REACTIONS (2)
  - Therapeutic product effect decreased [Unknown]
  - Sedation complication [Unknown]
